FAERS Safety Report 25130565 (Version 4)
Quarter: 2025Q2

REPORT INFORMATION
  Report Type: Spontaneous
  Country: CN (occurrence: CN)
  Receive Date: 20250327
  Receipt Date: 20250505
  Transmission Date: 20250717
  Serious: Yes (Death, Hospitalization, Other)
  Sender: CSL BEHRING
  Company Number: CN-BEH-2025200252

PATIENT
  Age: 84 Year
  Sex: Male

DRUGS (2)
  1. ALBURX [Suspect]
     Active Substance: ALBUMIN HUMAN
     Indication: Immunisation
     Dosage: 24 INJECTIONS TOTAL, 2 INJECTIONS DAILY
     Route: 065
     Dates: start: 20190617, end: 20190709
  2. HUMAN PLASMA [Concomitant]
     Active Substance: HUMAN PLASMA

REACTIONS (5)
  - Cardiac failure [Fatal]
  - Respiratory failure [Fatal]
  - Hepatitis C [Fatal]
  - Suspected transmission of an infectious agent via product [Unknown]
  - Product use in unapproved indication [Unknown]

NARRATIVE: CASE EVENT DATE: 20190617
